FAERS Safety Report 7961393-1 (Version None)
Quarter: 2011Q4

REPORT INFORMATION
  Report Type: 
  Country: None (occurrence: None)
  Receive Date: 20111121
  Receipt Date: 20110930
  Transmission Date: 20120403
  Serious: No
  Sender: FDA-Public Use
  Company Number: 1000024380

PATIENT
  Age: 77 Year
  Sex: Female

DRUGS (5)
  1. VIIBRYD [Suspect]
     Indication: DEPRESSION
     Dosage: 10 MG (10 MG, 1 IN 1 D), ORAL
     Dates: start: 20110928
  2. VIIBRYD [Suspect]
     Indication: HYPOTHYROIDISM
     Dosage: 10 MG (10 MG, 1 IN 1 D), ORAL
     Dates: start: 20110928
  3. VITAMIN B (VITAMIN B COMPLEX) (VITAMIN B COMPLEX) [Concomitant]
  4. HYDROCHLOROTHIAZIDE [Concomitant]
  5. SYNTHROID (LEVOTHYROXINE SODIUM) (LEVOTHYROXINE SODIUM) [Concomitant]

REACTIONS (1)
  - DEPRESSION [None]
